FAERS Safety Report 10085737 (Version 2)
Quarter: 2014Q3

REPORT INFORMATION
  Report Type: Spontaneous
  Country: RU (occurrence: RU)
  Receive Date: 20140418
  Receipt Date: 20140717
  Transmission Date: 20150326
  Serious: No
  Sender: FDA-Public Use
  Company Number: RU-JNJFOC-20140408924

PATIENT
  Age: 67 Year
  Sex: Female

DRUGS (12)
  1. CARDIOMAGNYL [Concomitant]
     Active Substance: ASPIRIN\MAGNESIUM HYDROXIDE
     Route: 065
  2. LOZAP (LOSARTAN POTASSIUM) [Concomitant]
     Route: 065
  3. LORATADINE. [Concomitant]
     Active Substance: LORATADINE
     Route: 065
  4. EGILOK [Concomitant]
     Route: 065
  5. MEXICOR [Concomitant]
     Route: 065
  6. MULTIVITAMIN AND MINERAL [Concomitant]
     Route: 065
  7. UBIDECARENONE [Concomitant]
     Active Substance: UBIDECARENONE
     Route: 065
  8. ENALAPRIL [Concomitant]
     Active Substance: ENALAPRIL
     Route: 065
  9. XARELTO [Suspect]
     Active Substance: RIVAROXABAN
     Indication: PRODUCT USED FOR UNKNOWN INDICATION
     Route: 048
     Dates: start: 20140329, end: 201404
  10. ENALAPRIL [Concomitant]
     Active Substance: ENALAPRIL
     Route: 065
  11. CONCOR [Concomitant]
     Active Substance: BISOPROLOL FUMARATE
     Route: 065
  12. PANANGIN [Concomitant]
     Route: 065

REACTIONS (2)
  - Blood pressure abnormal [Recovered/Resolved]
  - Therapeutic response changed [Recovered/Resolved]
